FAERS Safety Report 6150879-0 (Version None)
Quarter: 2009Q2

REPORT INFORMATION
  Report Type: 
  Country: None (occurrence: None)
  Receive Date: 20090406
  Receipt Date: 20090323
  Transmission Date: 20091009
  Serious: Yes (Hospitalization, Other)
  Sender: FDA-Public Use
  Company Number: THYM-1000933

PATIENT
  Age: 70 Year
  Sex: Female
  Weight: 97 kg

DRUGS (7)
  1. THYMOGLOBULIN [Suspect]
     Indication: PROPHYLAXIS AGAINST TRANSPLANT REJECTION
     Dosage: 150 MG, QD, INTRAVENOUS
     Route: 042
     Dates: start: 20090301, end: 20090301
  2. TACROLIMUS [Concomitant]
  3. METHYLPREDNISOLONE 16MG TAB [Concomitant]
  4. VALCYTE [Concomitant]
  5. ALBUMIN (HUMAN) [Concomitant]
  6. BENADRYL [Concomitant]
  7. ACETAMINOPHEN [Concomitant]

REACTIONS (8)
  - BLOOD ALBUMIN INCREASED [None]
  - CAPILLARY LEAK SYNDROME [None]
  - CYTOKINE RELEASE SYNDROME [None]
  - DYSPNOEA [None]
  - HYPOXIA [None]
  - PULMONARY OEDEMA [None]
  - PYREXIA [None]
  - RESPIRATORY DISTRESS [None]
